FAERS Safety Report 16880533 (Version 1)
Quarter: 2019Q4

REPORT INFORMATION
  Report Type: Spontaneous
  Country: GB (occurrence: GB)
  Receive Date: 20191003
  Receipt Date: 20191003
  Transmission Date: 20200122
  Serious: Yes (Other)
  Sender: FDA-Public Use
  Company Number: GB-MYLANLABS-2019M1091333

PATIENT
  Age: 57 Year
  Sex: Female
  Weight: 61 kg

DRUGS (8)
  1. CIPROFLOXACIN. [Suspect]
     Active Substance: CIPROFLOXACIN
     Indication: URINARY TRACT INFECTION
     Dosage: 1000 MILLIGRAM, QD
     Route: 048
     Dates: start: 20190125, end: 20190207
  2. MAGNESIUM CHLORIDE. [Concomitant]
     Active Substance: MAGNESIUM CHLORIDE
     Dosage: UNK
  3. VITAMIN C [Concomitant]
     Active Substance: ASCORBIC ACID
     Dosage: UNK
  4. MACROBID [Concomitant]
     Active Substance: NITROFURANTOIN\NITROFURANTOIN MONOHYDRATE
     Dosage: UNK
  5. PARACETAMOL [Concomitant]
     Active Substance: ACETAMINOPHEN
     Dosage: UNK
  6. PROBIOTIC                          /06395501/ [Concomitant]
     Active Substance: BIFIDOBACTERIUM ANIMALIS LACTIS
     Dosage: UNK
  7. COENZYME Q10 [Concomitant]
     Active Substance: UBIDECARENONE
     Dosage: UNK
  8. L-GLUTAMINE                        /00900601/ [Concomitant]
     Dosage: UNK

REACTIONS (7)
  - Fatigue [Not Recovered/Not Resolved]
  - Palpitations [Not Recovered/Not Resolved]
  - Tremor [Not Recovered/Not Resolved]
  - Dizziness [Not Recovered/Not Resolved]
  - Arthralgia [Not Recovered/Not Resolved]
  - Migraine with aura [Not Recovered/Not Resolved]
  - Pain [Not Recovered/Not Resolved]

NARRATIVE: CASE EVENT DATE: 20190125
